FAERS Safety Report 5753178-1 (Version None)
Quarter: 2008Q2

REPORT INFORMATION
  Report Type: 
  Country: None (occurrence: None)
  Receive Date: 20080530
  Receipt Date: 20080527
  Transmission Date: 20081010
  Serious: Yes (Other)
  Sender: FDA-Public Use
  Company Number: DE-BRISTOL-MYERS SQUIBB COMPANY-14207369

PATIENT
  Age: 80 Year
  Sex: Male

DRUGS (2)
  1. COUMADIN [Suspect]
     Indication: AORTIC VALVE REPLACEMENT
  2. SIMVASTATIN [Suspect]
     Indication: FAT TISSUE INCREASED

REACTIONS (1)
  - ISCHAEMIC STROKE [None]
